FAERS Safety Report 8633697 (Version 9)
Quarter: 2013Q1

REPORT INFORMATION
  Report Type: Report from Study
  Country: AR (occurrence: AR)
  Receive Date: 20120625
  Receipt Date: 20130201
  Transmission Date: 20140127
  Serious: Yes (Hospitalization, Other)
  Sender: FDA-Public Use
  Company Number: AR-JNJFOC-20120609053

PATIENT
  Age: 49 Year
  Sex: Female
  Weight: 61 kg

DRUGS (8)
  1. GOLIMUMAB [Suspect]
     Indication: RHEUMATOID ARTHRITIS
     Route: 042
     Dates: start: 20110317
  2. GOLIMUMAB [Suspect]
     Indication: RHEUMATOID ARTHRITIS
     Route: 042
     Dates: start: 20120510
  3. FOLIC ACID [Concomitant]
     Indication: RHEUMATOID ARTHRITIS
     Route: 048
     Dates: start: 20051130, end: 20120615
  4. LEVOTHYROXINE [Concomitant]
     Indication: HYPOTHYROIDISM
     Route: 048
     Dates: start: 20090127, end: 20120422
  5. LEVOTHYROXINE [Concomitant]
     Indication: HYPOTHYROIDISM
     Route: 048
     Dates: start: 20120423
  6. DICLOFENAC [Concomitant]
     Indication: RHEUMATOID ARTHRITIS
     Route: 048
     Dates: start: 20091028
  7. MEPREDNISONE [Concomitant]
     Indication: RHEUMATOID ARTHRITIS
     Route: 048
     Dates: start: 20100213
  8. PANTOPRAZOLE [Concomitant]
     Indication: PROPHYLAXIS
     Route: 048
     Dates: start: 20100618

REACTIONS (1)
  - Tuberculous pleurisy [Recovered/Resolved]
